FAERS Safety Report 6401219-0 (Version None)
Quarter: 2009Q4

REPORT INFORMATION
  Report Type: 
  Country: None (occurrence: None)
  Receive Date: 20091015
  Receipt Date: 20070907
  Transmission Date: 20100525
  Serious: Yes (Disabling)
  Sender: FDA-Public Use
  Company Number: US-ASTRAZENECA-2006UW07868

PATIENT
  Sex: Female
  Weight: 115.2 kg

DRUGS (9)
  1. SEROQUEL [Suspect]
     Dosage: 25-50 MG AT NIGHT
     Route: 048
     Dates: start: 20031110, end: 20040224
  2. EFFEXOR XR [Concomitant]
     Route: 048
     Dates: start: 20031110
  3. COLACE [Concomitant]
     Dosage: 100 MG TWO TIMES A DAY AS NEEDED
     Route: 048
     Dates: start: 20031110
  4. HYTRIN [Concomitant]
     Dosage: 1 MG 1 TO 2 AT NIGHT
     Dates: start: 20040224
  5. SONATA [Concomitant]
     Dosage: 1 TO 2 EACH NIGHT
     Dates: start: 20040224
  6. CLONAZEPAM [Concomitant]
     Indication: AFFECTIVE DISORDER
     Route: 048
     Dates: start: 20040116
  7. GLUCOVANCE [Concomitant]
     Dosage: 1.25-250 MG
     Route: 048
     Dates: start: 20040112
  8. VICODIN [Concomitant]
     Dates: start: 20040201
  9. ADVAIR DISKUS 100/50 [Concomitant]
     Dates: start: 20040201

REACTIONS (1)
  - ILL-DEFINED DISORDER [None]
